FAERS Safety Report 9366012 (Version 1)
Quarter: 2013Q2

REPORT INFORMATION
  Report Type: Spontaneous
  Country: BR (occurrence: BR)
  Receive Date: 20130625
  Receipt Date: 20130625
  Transmission Date: 20140414
  Serious: Yes (Other)
  Sender: FDA-Public Use
  Company Number: BR-AMGEN-BRASP2013043889

PATIENT
  Age: 61 Year
  Sex: Female

DRUGS (3)
  1. ENBREL [Suspect]
     Indication: RHEUMATOID ARTHRITIS
     Dosage: 50 MG, ONCE WEEKLY
     Route: 058
     Dates: end: 2012
  2. TAPAZOL                            /00022901/ [Concomitant]
     Indication: HYPOTHYROIDISM
     Dosage: 10 MG, 1X/DAY
  3. DIOVAN [Concomitant]
     Indication: HYPERTENSION
     Dosage: UNSPECIFIED DOSE 1X/DAY

REACTIONS (1)
  - Drug-induced liver injury [Unknown]
